FAERS Safety Report 9604789 (Version 1)
Quarter: 2013Q4

REPORT INFORMATION
  Report Type: Spontaneous
  Country: US (occurrence: US)
  Receive Date: 20131008
  Receipt Date: 20131008
  Transmission Date: 20140711
  Serious: Yes (Other)
  Sender: FDA-Public Use
  Company Number: US-ASTRAZENECA-2013SE72915

PATIENT
  Age: 70 Year
  Sex: Female
  Weight: 61.2 kg

DRUGS (10)
  1. ARIMIDEX [Suspect]
     Indication: BREAST CANCER FEMALE
     Route: 048
     Dates: start: 2006, end: 2012
  2. ARIMIDEX [Suspect]
     Indication: BREAST CANCER FEMALE
     Route: 048
     Dates: start: 2012
  3. METOPROLOL SUCCINATE [Suspect]
     Indication: BLOOD PRESSURE ABNORMAL
     Route: 048
  4. TAMOXIFEN [Suspect]
     Route: 048
     Dates: start: 1988
  5. GENERIC DETROL [Suspect]
     Indication: BLADDER DISORDER
     Route: 048
  6. HYDROCHLOROTHIAZIDE [Concomitant]
     Indication: BLOOD PRESSURE ABNORMAL
     Route: 048
  7. HYDROCHLOROTHIAZIDE [Concomitant]
     Indication: BLOOD PRESSURE ABNORMAL
     Route: 048
  8. POTASSIUM [Concomitant]
     Indication: BLOOD PRESSURE ABNORMAL
     Route: 048
  9. CALCITONIN NASAL SPRAY [Concomitant]
     Dosage: DAILY
     Route: 045
  10. NIFEDIPINE [Concomitant]
     Indication: BLOOD PRESSURE ABNORMAL
     Route: 048

REACTIONS (8)
  - Breast cancer recurrent [Unknown]
  - Arthralgia [Not Recovered/Not Resolved]
  - Musculoskeletal pain [Unknown]
  - Thirst [Unknown]
  - Arthritis [Not Recovered/Not Resolved]
  - Joint swelling [Not Recovered/Not Resolved]
  - Osteopenia [Unknown]
  - Neck pain [Unknown]
